FAERS Safety Report 8016609-2 (Version None)
Quarter: 2011Q4

REPORT INFORMATION
  Report Type: 
  Country: None (occurrence: None)
  Receive Date: 20111231
  Receipt Date: 20111118
  Transmission Date: 20120403
  Serious: No
  Sender: FDA-Public Use
  Company Number: US-BAYER-2011-112500

PATIENT
  Age: 58 Year
  Sex: Female
  Weight: 54 kg

DRUGS (2)
  1. ALEVE (CAPLET) [Suspect]
     Indication: HEADACHE
     Dosage: 2 TABS ONCE DAILY
     Route: 048
     Dates: start: 20110301, end: 20111118
  2. ASPIRIN [Suspect]
     Indication: HEADACHE
     Dosage: 1 TAB AS NEEDED
     Route: 048
     Dates: start: 20110801

REACTIONS (2)
  - DRUG INEFFECTIVE [None]
  - CONTUSION [None]
